FAERS Safety Report 17235321 (Version 2)
Quarter: 2021Q1

REPORT INFORMATION
  Report Type: Spontaneous
  Country: US (occurrence: US)
  Receive Date: 20200106
  Receipt Date: 20210104
  Transmission Date: 20210419
  Serious: No
  Sender: FDA-Public Use
  Company Number: US-LUPIN PHARMACEUTICALS INC.-2019-08346

PATIENT
  Age: 56 Year
  Sex: Male
  Weight: 70 kg

DRUGS (3)
  1. LEXAPRO [Concomitant]
     Active Substance: ESCITALOPRAM OXALATE
     Indication: ANXIETY
     Dosage: UNK
     Route: 065
  2. CEFDINIR CAPSULES USP, 300 MG [Suspect]
     Active Substance: CEFDINIR
     Indication: SINUSITIS
     Dosage: 300 MILLIGRAM, BID
     Route: 048
     Dates: start: 20191120, end: 20191126
  3. ZETIA [Concomitant]
     Active Substance: EZETIMIBE
     Indication: BLOOD CHOLESTEROL ABNORMAL
     Dosage: UNK
     Route: 065

REACTIONS (2)
  - Abdominal pain [Recovered/Resolved with Sequelae]
  - Muscle spasms [Recovered/Resolved with Sequelae]

NARRATIVE: CASE EVENT DATE: 20191120
